FAERS Safety Report 15577044 (Version 4)
Quarter: 2019Q1

REPORT INFORMATION
  Report Type: Spontaneous
  Country: JP (occurrence: JP)
  Receive Date: 20181101
  Receipt Date: 20190319
  Transmission Date: 20190417
  Serious: Yes (Death, Hospitalization, Other)
  Sender: FDA-Public Use
  Company Number: JP-CELGENEUS-JPN-20181010868

PATIENT
  Age: 81 Year
  Sex: Female

DRUGS (4)
  1. REVLIMID [Suspect]
     Active Substance: LENALIDOMIDE
     Route: 048
     Dates: start: 2017, end: 2018
  2. REVLIMID [Suspect]
     Active Substance: LENALIDOMIDE
     Indication: PLASMA CELL MYELOMA
     Route: 048
     Dates: start: 20171006, end: 2017
  3. NINLARO [Suspect]
     Active Substance: IXAZOMIB CITRATE
     Indication: PLASMA CELL MYELOMA
     Dosage: UNKNOWN
     Route: 048
     Dates: start: 20180301, end: 2018
  4. LENADEX [Suspect]
     Active Substance: DEXAMETHASONE ACETATE
     Indication: PLASMA CELL MYELOMA
     Route: 048
     Dates: start: 20171006, end: 2018

REACTIONS (7)
  - Sepsis [Fatal]
  - Cardiac failure [Unknown]
  - Pleural effusion [Unknown]
  - Plasma cell myeloma recurrent [Unknown]
  - Plasma cell myeloma [Fatal]
  - Cardiac tamponade [Fatal]
  - Pneumonia [Unknown]

NARRATIVE: CASE EVENT DATE: 2018
